FAERS Safety Report 14269389 (Version 2)
Quarter: 2018Q1

REPORT INFORMATION
  Report Type: Spontaneous
  Country: BR (occurrence: BR)
  Receive Date: 20171211
  Receipt Date: 20180119
  Transmission Date: 20180508
  Serious: Yes (Other)
  Sender: FDA-Public Use
  Company Number: BR-PFIZER INC-2017523978

PATIENT
  Age: 48 Year
  Sex: Female

DRUGS (8)
  1. EFFEXOR XR [Suspect]
     Active Substance: VENLAFAXINE HYDROCHLORIDE
     Indication: DEPRESSION
     Dosage: 1 TABLET OF 75MG IN THE MORNING
     Dates: start: 201701, end: 201704
  2. EFFEXOR XR [Suspect]
     Active Substance: VENLAFAXINE HYDROCHLORIDE
     Indication: PANIC DISORDER
  3. EFFEXOR XR [Suspect]
     Active Substance: VENLAFAXINE HYDROCHLORIDE
     Indication: SEIZURE
  4. LYRICA [Suspect]
     Active Substance: PREGABALIN
     Indication: FIBROMYALGIA
     Dosage: 1 TABLET OF 150 MG AT NIGHT
     Dates: start: 201704
  5. BROMAZEPAM [Concomitant]
     Active Substance: BROMAZEPAM
     Dosage: UNK
     Dates: start: 201701
  6. LYRICA [Suspect]
     Active Substance: PREGABALIN
     Indication: PAIN
     Dosage: 1 TABLET OF 75MG AT NIGHT
     Dates: start: 201701, end: 201704
  7. EFFEXOR XR [Suspect]
     Active Substance: VENLAFAXINE HYDROCHLORIDE
     Indication: ANXIETY
     Dosage: 1 TABLET OF 150 MG IN THE MORNING
     Dates: start: 201704
  8. CONDROFLEX [Concomitant]
     Active Substance: CHONDROITIN SULFATE (BOVINE)\GLUCOSAMINE SULFATE
     Dosage: UNK
     Dates: start: 2014

REACTIONS (19)
  - Syncope [Recovered/Resolved]
  - Withdrawal syndrome [Recovered/Resolved]
  - Vertigo [Recovered/Resolved]
  - Vision blurred [Recovered/Resolved]
  - Drug effect incomplete [Unknown]
  - Weight increased [Recovered/Resolved]
  - Vomiting [Recovered/Resolved]
  - Memory impairment [Recovered/Resolved]
  - Seizure [Recovered/Resolved]
  - Dependence [Recovered/Resolved]
  - Balance disorder [Recovered/Resolved]
  - Fear [Recovered/Resolved]
  - Increased appetite [Not Recovered/Not Resolved]
  - Feeling abnormal [Recovered/Resolved]
  - Urinary incontinence [Recovered/Resolved]
  - Drug dose omission [Unknown]
  - Stress [Recovered/Resolved]
  - Fatigue [Recovered/Resolved]
  - Self esteem decreased [Recovered/Resolved]

NARRATIVE: CASE EVENT DATE: 2017
